FAERS Safety Report 7715623-1 (Version None)
Quarter: 2011Q3

REPORT INFORMATION
  Report Type: 
  Country: None (occurrence: None)
  Receive Date: 20110829
  Receipt Date: 20110822
  Transmission Date: 20111222
  Serious: Yes (Other)
  Sender: FDA-Public Use
  Company Number: JP-ROCHE-760041

PATIENT
  Age: 41 Year
  Sex: Female

DRUGS (4)
  1. TACROLIMUS [Concomitant]
     Dosage: NOTE: DOSAGE IS UNCERTAIN
  2. METHYLPREDNISOLONE [Concomitant]
     Dosage: NOTE: DOSAGE IS UNCERTAIN.
  3. CELLCEPT [Suspect]
     Indication: PROPHYLAXIS AGAINST TRANSPLANT REJECTION
     Dosage: NOTE: DOSAGE IS UNCERTAIN.
     Route: 048
  4. BASILIXIMAB [Concomitant]
     Dosage: DRUG:(GENETICAL RECOMBINATION)(BASILIXIMAB(GENETICAL RECOMBINATION)) NOTE: DOSAGE IS UNCERTAIN
     Route: 041

REACTIONS (1)
  - GASTROINTESTINAL STROMAL TUMOUR [None]
